FAERS Safety Report 17122395 (Version 1)
Quarter: 2019Q4

REPORT INFORMATION
  Report Type: Spontaneous
  Country: US (occurrence: US)
  Receive Date: 20191206
  Receipt Date: 20191206
  Transmission Date: 20200122
  Serious: No
  Sender: FDA-Public Use
  Company Number: US-VERTEX PHARMACEUTICALS-2019-011969

PATIENT
  Age: 24 Year
  Sex: Male

DRUGS (2)
  1. TUSSIONEX [HYDROCODONE;PHENYLTOLOXAMINE] [Suspect]
     Active Substance: HYDROCODONE\PHENYLTOLOXAMINE
     Indication: ABDOMINAL PAIN
     Route: 048
  2. TRIKAFTA [Suspect]
     Active Substance: ELEXACAFTOR\IVACAFTOR\TEZACAFTOR
     Indication: CYSTIC FIBROSIS
     Dosage: 2 TABLETS (100MG ELEXACAFTOR/ 50MG TEZACAFTOR/ 75MG IVACAFTOR) AM; 1 TABLET (150MG IVACAFTOR) PM
     Route: 048
     Dates: start: 20191109

REACTIONS (2)
  - Abdominal pain [Unknown]
  - Rash pruritic [Unknown]

NARRATIVE: CASE EVENT DATE: 20191116
